FAERS Safety Report 11992072 (Version 1)
Quarter: 2016Q1

REPORT INFORMATION
  Report Type: Spontaneous
  Country: US (occurrence: US)
  Receive Date: 20160203
  Receipt Date: 20160203
  Transmission Date: 20160526
  Serious: No
  Sender: FDA-Public Use
  Company Number: US-JNJFOC-20151213662

PATIENT
  Sex: Female
  Weight: 81.65 kg

DRUGS (4)
  1. ULTRAM ER [Concomitant]
     Active Substance: TRAMADOL HYDROCHLORIDE
     Indication: ARTHRITIS
     Route: 048
  2. LISINOPRIL. [Concomitant]
     Active Substance: LISINOPRIL
     Indication: BLOOD PRESSURE MEASUREMENT
     Route: 048
  3. TYLENOL [Suspect]
     Active Substance: ACETAMINOPHEN
     Route: 065
  4. TYLENOL [Suspect]
     Active Substance: ACETAMINOPHEN
     Indication: PRODUCT USED FOR UNKNOWN INDICATION
     Route: 065

REACTIONS (3)
  - Malaise [Unknown]
  - Vomiting [Unknown]
  - Hypersensitivity [Unknown]
